FAERS Safety Report 6072555-5 (Version None)
Quarter: 2009Q1

REPORT INFORMATION
  Report Type: 
  Country: None (occurrence: None)
  Receive Date: 20090210
  Receipt Date: 20090126
  Transmission Date: 20090719
  Serious: Yes (Hospitalization)
  Sender: FDA-Public Use
  Company Number: JP-ROCHE-608416

PATIENT
  Sex: Male

DRUGS (3)
  1. CAPECITABINE [Suspect]
     Indication: GASTRIC CANCER
     Dosage: FREQUENCY REPORTED AS BID ON D1-14Q3W
     Route: 048
     Dates: start: 20081105, end: 20090114
  2. BLINDED BEVACIZUMAB [Suspect]
     Indication: GASTRIC CANCER
     Dosage: FORM REPORTED AS INFUSION
     Route: 042
     Dates: start: 20081105, end: 20090107
  3. CISPLATIN [Suspect]
     Indication: GASTRIC CANCER
     Dosage: FORM REPORTED AS INFUSION
     Route: 042
     Dates: start: 20081105, end: 20090107

REACTIONS (1)
  - METASTASES TO MENINGES [None]
